FAERS Safety Report 7588189-7 (Version None)
Quarter: 2011Q3

REPORT INFORMATION
  Report Type: 
  Country: None (occurrence: None)
  Receive Date: 20110705
  Receipt Date: 20110613
  Transmission Date: 20111222
  Serious: Yes (Hospitalization, Other)
  Sender: FDA-Public Use
  Company Number: US-BAYER-2011-023001

PATIENT
  Age: 29 Year
  Sex: Female
  Weight: 82.086 kg

DRUGS (5)
  1. ZYRTEC [Concomitant]
     Dosage: UNK
     Dates: start: 20050801
  2. YASMIN [Suspect]
     Indication: CONTRACEPTION
     Dosage: UNK
     Route: 048
     Dates: start: 20021201, end: 20091001
  3. YAZ [Suspect]
     Indication: CONTRACEPTION
     Dosage: UNK
     Route: 048
     Dates: start: 20021201, end: 20091001
  4. ZYRTEC [Concomitant]
     Route: 048
  5. CONTRACEPTIVES NOS [Concomitant]
     Route: 048

REACTIONS (3)
  - ABDOMINAL PAIN [None]
  - CHOLECYSTITIS CHRONIC [None]
  - CHOLELITHIASIS [None]
